FAERS Safety Report 12747226 (Version 1)
Quarter: 2016Q3

REPORT INFORMATION
  Report Type: Spontaneous
  Country: US (occurrence: US)
  Receive Date: 20160915
  Receipt Date: 20160915
  Transmission Date: 20161109
  Serious: Yes (Hospitalization, Other)
  Sender: FDA-Public Use
  Company Number: US-SAOL THERAPEUTICS-2016SAO00611

PATIENT
  Age: 19 Year
  Sex: Female
  Weight: 40.36 kg

DRUGS (4)
  1. MIRALAX [Concomitant]
     Active Substance: POLYETHYLENE GLYCOL 3350
  2. LIORESAL [Suspect]
     Active Substance: BACLOFEN
     Indication: CEREBRAL PALSY
     Dosage: 100 ?G\DAY
     Route: 037
  3. LIORESAL [Suspect]
     Active Substance: BACLOFEN
     Indication: MUSCLE SPASTICITY
     Dosage: 130.2 ?G, \DAY
     Route: 037
  4. KEPPRA [Concomitant]
     Active Substance: LEVETIRACETAM

REACTIONS (8)
  - Seroma [Recovered/Resolved]
  - Cerebrospinal fluid leakage [Recovered/Resolved]
  - Hypotension [Recovered/Resolved]
  - Muscle spasticity [Recovered/Resolved]
  - Akathisia [Unknown]
  - Therapeutic response unexpected [Recovered/Resolved]
  - Device connection issue [Recovered/Resolved]
  - Pruritus [Unknown]

NARRATIVE: CASE EVENT DATE: 201608
